FAERS Safety Report 5870765-0 (Version None)
Quarter: 2008Q3

REPORT INFORMATION
  Report Type: 
  Country: None (occurrence: None)
  Receive Date: 20080904
  Receipt Date: 20080902
  Transmission Date: 20090109
  Serious: Yes (Hospitalization)
  Sender: FDA-Public Use
  Company Number: JP-EISAI MEDICAL RESEARCH-E2020-02998-SPO-JP

PATIENT
  Age: 77 Year
  Sex: Female

DRUGS (7)
  1. ARICEPT [Suspect]
     Indication: DEMENTIA ALZHEIMER'S TYPE
     Route: 048
     Dates: start: 20050801, end: 20080630
  2. BLOPRESS [Concomitant]
     Indication: HYPERTENSION
     Route: 048
  3. FLUITRAN [Concomitant]
     Route: 048
  4. CARBADOGEN [Concomitant]
     Route: 048
  5. GASPORT [Concomitant]
     Route: 048
  6. NORVASC [Concomitant]
     Route: 048
  7. LAC B [Concomitant]
     Route: 048

REACTIONS (2)
  - BRADYCARDIA [None]
  - LOSS OF CONSCIOUSNESS [None]
